FAERS Safety Report 7626739-2 (Version None)
Quarter: 2011Q3

REPORT INFORMATION
  Report Type: 
  Country: None (occurrence: None)
  Receive Date: 20110721
  Receipt Date: 20110708
  Transmission Date: 20111222
  Serious: Yes (Other)
  Sender: FDA-Public Use
  Company Number: FR-ELI_LILLY_AND_COMPANY-FR201107002142

PATIENT
  Sex: Female
  Weight: 110 kg

DRUGS (4)
  1. PROZAC [Suspect]
     Dosage: UNK
     Dates: start: 20000101, end: 20090101
  2. MEDIATOR [Concomitant]
     Dosage: 3 DF, QD
     Dates: start: 19980101, end: 20090101
  3. CORTISONE ACETATE [Concomitant]
     Indication: ASTHMA
  4. MEDIATOR [Concomitant]
     Dosage: 6 DF, QD
     Dates: start: 19950101, end: 19980101

REACTIONS (1)
  - AORTIC VALVE INCOMPETENCE [None]
